FAERS Safety Report 11683941 (Version 1)
Quarter: 2015Q4

REPORT INFORMATION
  Report Type: Spontaneous
  Country: CA (occurrence: CA)
  Receive Date: 20151029
  Receipt Date: 20151029
  Transmission Date: 20160304
  Serious: Yes (Other)
  Sender: FDA-Public Use
  Company Number: CA-BAXTER-2015BAX058270

PATIENT

DRUGS (6)
  1. ISONIAZID. [Suspect]
     Active Substance: ISONIAZID
     Indication: FOETAL EXPOSURE TIMING UNSPECIFIED
     Route: 064
  2. VIOXX [Suspect]
     Active Substance: ROFECOXIB
     Indication: FOETAL EXPOSURE TIMING UNSPECIFIED
     Route: 064
  3. METHOTREXATE SODIUM. [Suspect]
     Active Substance: METHOTREXATE SODIUM
     Indication: FOETAL EXPOSURE TIMING UNSPECIFIED
     Route: 064
  4. FLUCONAZOLE INJECTION, USP, 400MG/200ML [Suspect]
     Active Substance: FLUCONAZOLE
     Indication: FOETAL EXPOSURE TIMING UNSPECIFIED
     Route: 064
  5. MEPREDNISONE [Suspect]
     Active Substance: MEPREDNISONE
     Indication: FOETAL EXPOSURE TIMING UNSPECIFIED
     Route: 064
  6. RANITIDINE [Suspect]
     Active Substance: RANITIDINE\RANITIDINE HYDROCHLORIDE
     Indication: FOETAL EXPOSURE TIMING UNSPECIFIED
     Route: 064

REACTIONS (9)
  - Congenital skin dimples [Unknown]
  - Foetal growth restriction [Unknown]
  - Foetal exposure during pregnancy [Unknown]
  - Cerebral ventricle dilatation [Unknown]
  - Low birth weight baby [Unknown]
  - Finger deformity [Unknown]
  - Talipes [Unknown]
  - Premature baby [Unknown]
  - Apgar score abnormal [Unknown]
